FAERS Safety Report 10818484 (Version 6)
Quarter: 2015Q2

REPORT INFORMATION
  Report Type: Spontaneous
  Country: US (occurrence: US)
  Receive Date: 20150218
  Receipt Date: 20150403
  Transmission Date: 20150821
  Serious: Yes (Disabling, Other)
  Sender: FDA-Public Use
  Company Number: US-PFIZER INC-2015058940

PATIENT
  Age: 57 Year
  Sex: Male
  Weight: 104.31 kg

DRUGS (5)
  1. MELOXICAM. [Concomitant]
     Active Substance: MELOXICAM
     Dosage: UNK
     Dates: end: 20150114
  2. VIAGRA [Interacting]
     Active Substance: SILDENAFIL CITRATE
     Dosage: 100 MG 1 PILL 9 PM
     Route: 065
     Dates: start: 20150128, end: 2015
  3. AZOR [Interacting]
     Active Substance: AMLODIPINE BESYLATE\OLMESARTAN MEDOXOMIL
     Indication: BLOOD PRESSURE ABNORMAL
     Dosage: 10/40 MG IN THE MORNING
     Route: 065
  4. VIAGRA [Interacting]
     Active Substance: SILDENAFIL CITRATE
     Dosage: 100 MG, UNK
     Route: 065
     Dates: start: 20141220
  5. VIAGRA [Suspect]
     Active Substance: SILDENAFIL CITRATE
     Indication: ERECTILE DYSFUNCTION
     Dosage: 100 MG, UNK
     Route: 065
     Dates: start: 20141115

REACTIONS (11)
  - Drug ineffective [Not Recovered/Not Resolved]
  - Tremor [Recovered/Resolved]
  - Intervertebral disc protrusion [Not Recovered/Not Resolved]
  - Sensory disturbance [Unknown]
  - Heart rate increased [Recovered/Resolved]
  - Food interaction [Unknown]
  - Confusional state [Recovered/Resolved]
  - Spinal cord injury [Not Recovered/Not Resolved]
  - Drug interaction [Unknown]
  - Flushing [Recovered/Resolved]
  - Drug effect incomplete [Unknown]

NARRATIVE: CASE EVENT DATE: 20141115
